FAERS Safety Report 18908886 (Version 1)
Quarter: 2021Q1

REPORT INFORMATION
  Report Type: Spontaneous
  Country: US (occurrence: US)
  Receive Date: 20210218
  Receipt Date: 20210218
  Transmission Date: 20210420
  Serious: No
  Sender: FDA-Public Use
  Company Number: US-BAUSCH-BL-2021-005080

PATIENT
  Sex: Female

DRUGS (1)
  1. PIMECROLIMUS. [Suspect]
     Active Substance: PIMECROLIMUS
     Indication: DERMATITIS CONTACT
     Route: 061
     Dates: start: 202002, end: 2020

REACTIONS (1)
  - Eyelids pruritus [Unknown]

NARRATIVE: CASE EVENT DATE: 2020
